FAERS Safety Report 5054144-4 (Version None)
Quarter: 2006Q3

REPORT INFORMATION
  Report Type: 
  Country: None (occurrence: None)
  Receive Date: 20060718
  Receipt Date: 20060709
  Transmission Date: 20061208
  Serious: Yes (Other)
  Sender: FDA-Public Use
  Company Number: 2006UW14261

PATIENT
  Age: 55 Year
  Sex: Female
  Weight: 63.5 kg

DRUGS (3)
  1. ARIMIDEX [Suspect]
     Indication: BREAST CANCER FEMALE
     Route: 048
     Dates: start: 20060101
  2. LIPITOR [Concomitant]
  3. SINGULAIR [Concomitant]

REACTIONS (8)
  - ARTHRALGIA [None]
  - BLOOD TRIGLYCERIDES INCREASED [None]
  - BURNING SENSATION [None]
  - FAILURE OF IMPLANT [None]
  - HIGH DENSITY LIPOPROTEIN DECREASED [None]
  - MUSCULOSKELETAL DISORDER [None]
  - MYALGIA [None]
  - TRIGGER FINGER [None]
